FAERS Safety Report 7789841-0 (Version None)
Quarter: 2011Q3

REPORT INFORMATION
  Report Type: 
  Country: None (occurrence: None)
  Receive Date: 20110930
  Receipt Date: 20110921
  Transmission Date: 20111222
  Serious: Yes (Life-Threatening, Hospitalization, Other)
  Sender: FDA-Public Use
  Company Number: US-ASTRAZENECA-2011SE50649

PATIENT
  Age: 80 Year
  Sex: Male

DRUGS (10)
  1. ROPIVACAINE HYDROCHLORIDE [Suspect]
     Indication: EPIDURAL ANAESTHESIA
     Route: 008
     Dates: start: 20110629
  2. SAXAGLIPTIN CODE NOT BROKEN [Suspect]
     Route: 065
     Dates: start: 20110711
  3. ASPIRIN [Concomitant]
  4. DIURETICS [Concomitant]
  5. SAXAGLIPTIN CODE NOT BROKEN [Suspect]
     Indication: TYPE 2 DIABETES MELLITUS
     Route: 065
     Dates: start: 20110217, end: 20110629
  6. ANGIOTENSIN CONVERTING ENZYME INHIBITOR [Concomitant]
  7. STATIN [Concomitant]
  8. FENTANYL [Suspect]
     Indication: EPIDURAL ANAESTHESIA
     Route: 008
     Dates: start: 20110629
  9. ADRENALIN IN OIL INJ [Suspect]
     Indication: EPIDURAL ANAESTHESIA
     Route: 008
     Dates: start: 20110629
  10. EZETIMIBE [Concomitant]
     Dates: start: 20110512

REACTIONS (6)
  - HYPOTENSION [None]
  - THROMBOCYTOPENIA [None]
  - SICK SINUS SYNDROME [None]
  - HAEMORRHAGE [None]
  - INCORRECT ROUTE OF DRUG ADMINISTRATION [None]
  - ANAEMIA [None]
